FAERS Safety Report 11709241 (Version 1)
Quarter: 2015Q4

REPORT INFORMATION
  Report Type: Spontaneous
  Country: US (occurrence: US)
  Receive Date: 20151104
  Receipt Date: 20151104
  Transmission Date: 20160304
  Serious: No
  Sender: FDA-Public Use
  Company Number: US-ELI_LILLY_AND_COMPANY-US201012000641

PATIENT
  Age: 49 Year
  Sex: Female

DRUGS (20)
  1. NIACIN. [Concomitant]
     Active Substance: NIACIN
  2. BIOTIN [Concomitant]
     Active Substance: BIOTIN
  3. PROZAC [Concomitant]
     Active Substance: FLUOXETINE HYDROCHLORIDE
  4. TESTOSTERONE. [Concomitant]
     Active Substance: TESTOSTERONE
  5. FORTEO [Suspect]
     Active Substance: TERIPARATIDE
     Indication: OSTEOPOROSIS
     Dosage: 20 UG, DAILY (1/D)
     Dates: start: 20101130
  6. VITAMIN D [Concomitant]
     Active Substance: CHOLECALCIFEROL
  7. MINERAL SUPPLEMENTS [Concomitant]
     Active Substance: MINERALS
  8. AVIDART [Concomitant]
  9. DEXTROAMPHETAMINE. [Concomitant]
     Active Substance: DEXTROAMPHETAMINE
  10. MULTIVITAMIN [Concomitant]
     Active Substance: VITAMINS
  11. ANALGESICS [Concomitant]
     Active Substance: UNSPECIFIED INGREDIENT
     Indication: PAIN
  12. FORTEO [Suspect]
     Active Substance: TERIPARATIDE
     Dosage: 20 UG, DAILY (1/D)
  13. YASMIN [Concomitant]
     Active Substance: DROSPIRENONE\ETHINYL ESTRADIOL
  14. VITAMIN B COMPLEX [Concomitant]
     Active Substance: CYANOCOBALAMIN\DEXPANTHENOL\NIACINAMIDE\PYRIDOXINE HYDROCHLORIDE\RIBOFLAVIN 5^-PHOSPHATE SODIUM\THIAMINE HYDROCHLORIDE\VITAMIN B COMPLEX
  15. CITRICAL [Concomitant]
     Active Substance: CALCIUM CITRATE
  16. FORTEO [Suspect]
     Active Substance: TERIPARATIDE
     Dosage: 20 UG, DAILY (1/D)
     Route: 065
  17. DILAUDID [Concomitant]
     Active Substance: HYDROMORPHONE HYDROCHLORIDE
  18. SYNTHROID [Concomitant]
     Active Substance: LEVOTHYROXINE SODIUM
  19. FORTEO [Suspect]
     Active Substance: TERIPARATIDE
     Dosage: 20 UG, DAILY (1/D)
  20. TOPAMAX [Concomitant]
     Active Substance: TOPIRAMATE

REACTIONS (17)
  - Weight decreased [Unknown]
  - Arthralgia [Not Recovered/Not Resolved]
  - Muscle atrophy [Unknown]
  - Myalgia [Unknown]
  - Skin mass [Unknown]
  - Anxiety [Unknown]
  - Vitamin D deficiency [Unknown]
  - Injection site vesicles [Unknown]
  - Musculoskeletal pain [Unknown]
  - Hypotension [Unknown]
  - Calcium deficiency [Unknown]
  - Skin warm [Recovered/Resolved]
  - Skin disorder [Unknown]
  - Constipation [Unknown]
  - Orthostatic hypotension [Unknown]
  - Injection site erythema [Unknown]
  - Bone pain [Unknown]

NARRATIVE: CASE EVENT DATE: 20110315
